FAERS Safety Report 7884290-9 (Version None)
Quarter: 2011Q4

REPORT INFORMATION
  Report Type: 
  Country: None (occurrence: None)
  Receive Date: 20111102
  Receipt Date: 20111028
  Transmission Date: 20120403
  Serious: No
  Sender: FDA-Public Use
  Company Number: US-PFIZER INC-2011264835

PATIENT
  Sex: Female
  Weight: 58.9 kg

DRUGS (2)
  1. EFFEXOR XR [Suspect]
     Indication: DEPRESSION
     Dosage: 75 MG, DAILY
  2. TRILEPTAL [Concomitant]
     Indication: BIPOLAR DISORDER
     Dosage: 900 MG, DAILY

REACTIONS (1)
  - DRUG SCREEN FALSE POSITIVE [None]
